FAERS Safety Report 4563944-6 (Version None)
Quarter: 2005Q1

REPORT INFORMATION
  Report Type: 
  Country: None (occurrence: None)
  Receive Date: 20050121
  Receipt Date: 20050107
  Transmission Date: 20050727
  Serious: Yes (Hospitalization)
  Sender: FDA-Public Use
  Company Number: 031-0981-990090

PATIENT
  Age: 58 Year
  Sex: Male
  Weight: 90 kg

DRUGS (4)
  1. ATORVASTATIN (ATORVASTATIN) [Suspect]
     Indication: HYPERLIPIDAEMIA
     Dosage: 10 MG DAILY ORAL
     Route: 048
     Dates: start: 19990215, end: 19990330
  2. ATORVASTATIN (ATORVASTATIN) [Suspect]
     Indication: HYPERLIPIDAEMIA
     Dosage: 10 MG DAILY ORAL
     Route: 048
     Dates: start: 19990331, end: 19990827
  3. ASCAL (ACETYLSALICYLATE CALCIUM) [Concomitant]
  4. SELOKEEN ZOC (METOPROLOL SUCCINATE) [Concomitant]

REACTIONS (3)
  - CATHETER SITE HAEMATOMA [None]
  - CORONARY ANGIOPLASTY [None]
  - POST PROCEDURAL COMPLICATION [None]
